FAERS Safety Report 9205410 (Version 1)
Quarter: 2013Q2

REPORT INFORMATION
  Report Type: Spontaneous
  Country: JP (occurrence: JP)
  Receive Date: 20130402
  Receipt Date: 20130402
  Transmission Date: 20140414
  Serious: No
  Sender: FDA-Public Use
  Company Number: JP-BRISTOL-MYERS SQUIBB COMPANY-18743070

PATIENT
  Age: 47 Year
  Sex: Male

DRUGS (2)
  1. STOCRIN TABS [Suspect]
     Dosage: STOCRIN TABS 200MG FILM COATED TABS
     Route: 048
     Dates: start: 20130314
  2. ISENTRESS [Suspect]
     Dosage: ISENTRESS TABS 400MG
     Route: 048
     Dates: end: 20130313

REACTIONS (4)
  - Blood creatine phosphokinase increased [Unknown]
  - Dyspnoea [Unknown]
  - Muscle spasms [Unknown]
  - Dizziness [Unknown]
